FAERS Safety Report 18010052 (Version 4)
Quarter: 2021Q2

REPORT INFORMATION
  Report Type: Report from Study
  Country: DE (occurrence: DE)
  Receive Date: 20200710
  Receipt Date: 20210604
  Transmission Date: 20210717
  Serious: Yes (Death, Other)
  Sender: FDA-Public Use
  Company Number: NVSC2020DE193482

PATIENT
  Age: 55 Year
  Sex: Male

DRUGS (6)
  1. APIDRA SOLOSTAR [Concomitant]
     Active Substance: INSULIN GLULISINE
     Indication: TYPE 1 DIABETES MELLITUS
     Dosage: UNK (3,5 IE,JE, BE IN THE MORNINGS), 3,3 IE JE BE IN THE NOON, 4,0 IE JE BE IN THE EVENING,3,0 IE JE
     Route: 065
  2. CANDESARTAN. [Concomitant]
     Active Substance: CANDESARTAN
     Indication: DIABETIC NEUROPATHY
     Dosage: 1 DF
     Route: 065
  3. FORMATRIS [Concomitant]
     Active Substance: FORMOTEROL FUMARATE
     Indication: BRONCHITIS CHRONIC
     Dosage: 2 DF, BID
     Route: 065
  4. SERTRALIN [Concomitant]
     Active Substance: SERTRALINE HYDROCHLORIDE
     Indication: DEPRESSION
     Dosage: 1 DF, QD
     Route: 065
  5. COSENTYX [Suspect]
     Active Substance: SECUKINUMAB
     Indication: PSORIASIS
     Dosage: 300 MG, Q4W
     Route: 065
     Dates: start: 20151123, end: 20190628
  6. TRESIBA [Concomitant]
     Active Substance: INSULIN DEGLUDEC
     Indication: TYPE 1 DIABETES MELLITUS
     Dosage: 14 IU, UNKNOWN
     Route: 065

REACTIONS (9)
  - Metastases to liver [Fatal]
  - Latent tuberculosis [Unknown]
  - Hyperhidrosis [Unknown]
  - Adenocarcinoma of colon [Not Recovered/Not Resolved]
  - Tremor [Unknown]
  - Transient ischaemic attack [Unknown]
  - Attention deficit hyperactivity disorder [Unknown]
  - Colon cancer metastatic [Fatal]
  - Metastases to lymph nodes [Fatal]

NARRATIVE: CASE EVENT DATE: 2017
